FAERS Safety Report 4878194-3 (Version None)
Quarter: 2005Q4

REPORT INFORMATION
  Report Type: 
  Country: None (occurrence: None)
  Receive Date: 20051209
  Receipt Date: 20050811
  Transmission Date: 20060501
  Serious: Yes (Other)
  Sender: FDA-Public Use
  Company Number: USA-2004-0014922

PATIENT
  Age: 48 Year
  Sex: Male
  Weight: 72.6 kg

DRUGS (3)
  1. OXYCONTIN [Suspect]
     Indication: PAIN
  2. BUPIVACAINE [Concomitant]
  3. DEPO-MEDROL [Concomitant]

REACTIONS (14)
  - ANXIETY [None]
  - CACHEXIA [None]
  - CONSTIPATION [None]
  - DELUSIONAL DISORDER, UNSPECIFIED TYPE [None]
  - DEPRESSION [None]
  - DRUG DEPENDENCE [None]
  - DRUG WITHDRAWAL SYNDROME [None]
  - LIVER FUNCTION TEST ABNORMAL [None]
  - MEDICATION ERROR [None]
  - OBSESSIVE-COMPULSIVE DISORDER [None]
  - PAIN [None]
  - PARANOIA [None]
  - SEXUAL DYSFUNCTION [None]
  - WEIGHT DECREASED [None]
